FAERS Safety Report 5532875-7 (Version None)
Quarter: 2007Q4

REPORT INFORMATION
  Report Type: 
  Country: None (occurrence: None)
  Receive Date: 20071129
  Receipt Date: 20071120
  Transmission Date: 20080405
  Serious: Yes (Hospitalization)
  Sender: FDA-Public Use
  Company Number: CERZ-12000

PATIENT
  Age: 49 Year
  Sex: Male
  Weight: 92.7 kg

DRUGS (1)
  1. CEREZYME [Suspect]
     Indication: GAUCHER'S DISEASE
     Dosage: 4400 UNITS Q2WKS IV
     Route: 042
     Dates: start: 19980326

REACTIONS (7)
  - ANOSMIA [None]
  - CLAVICLE FRACTURE [None]
  - DEAFNESS UNILATERAL [None]
  - FALL [None]
  - RIB FRACTURE [None]
  - SKULL FRACTURE [None]
  - TINNITUS [None]
